FAERS Safety Report 12059456 (Version 1)
Quarter: 2016Q1

REPORT INFORMATION
  Report Type: Spontaneous
  Country: US (occurrence: US)
  Receive Date: 20160210
  Receipt Date: 20160210
  Transmission Date: 20160526
  Serious: Yes (Other)
  Sender: FDA-Public Use
  Company Number: US-WATSON-2016-02808

PATIENT
  Sex: Male

DRUGS (2)
  1. PREDNISOLONE (WATSON LABORATORIES) [Suspect]
     Active Substance: PREDNISOLONE
     Dosage: {10 MG CONSISTENTLY
     Route: 065
  2. PREDNISOLONE (WATSON LABORATORIES) [Suspect]
     Active Substance: PREDNISOLONE
     Indication: PRODUCT USED FOR UNKNOWN INDICATION
     Dosage: 10 MG, DAILY
     Route: 065

REACTIONS (1)
  - Secondary adrenocortical insufficiency [Unknown]
